FAERS Safety Report 10383610 (Version 2)
Quarter: 2014Q3

REPORT INFORMATION
  Report Type: Spontaneous
  Country: JP (occurrence: JP)
  Receive Date: 20140814
  Receipt Date: 20140829
  Transmission Date: 20150326
  Serious: Yes (Hospitalization, Other)
  Sender: FDA-Public Use
  Company Number: JP-009507513-1408JPN005825

PATIENT
  Age: 38 Year
  Sex: Female

DRUGS (8)
  1. ACYCLOVIR. [Suspect]
     Active Substance: ACYCLOVIR
     Indication: HERPES ZOSTER
     Dosage: DAILY DOSE UNKNOWN, FORMULATION: POR
     Route: 048
     Dates: start: 20130115
  2. MYCOPHENOLATE MOFETIL. [Suspect]
     Active Substance: MYCOPHENOLATE MOFETIL
     Dosage: DAILY DOSE UNKNOWN
     Route: 048
     Dates: start: 20130115
  3. METHYLPREDNISOLONE [Concomitant]
     Active Substance: METHYLPREDNISOLONE
     Indication: IMMUNOSUPPRESSION
     Dosage: DAILY DOSE UNKNOWN
     Route: 065
  4. NU-LOTAN [Suspect]
     Active Substance: LOSARTAN POTASSIUM
     Dosage: DAILY DOSE UNKNOWN
     Route: 048
  5. TACROLIMUS. [Concomitant]
     Active Substance: TACROLIMUS
     Indication: IMMUNOSUPPRESSION
     Dosage: DAILY DOSE UNKNOWN
     Route: 065
  6. MYCOPHENOLATE MOFETIL. [Suspect]
     Active Substance: MYCOPHENOLATE MOFETIL
     Indication: IMMUNOSUPPRESSION
     Dosage: DAILY DOSE UNKNOWN
     Route: 048
     Dates: end: 20130114
  7. TAKEPRON [Suspect]
     Active Substance: LANSOPRAZOLE
     Dosage: DAILY DOSE UNKNOWN
     Route: 065
  8. GRAN [Concomitant]
     Active Substance: FILGRASTIM
     Indication: WHITE BLOOD CELL COUNT DECREASED
     Dosage: DAILY DOSE UNKNOWN
     Route: 051

REACTIONS (2)
  - Agranulocytosis [Recovering/Resolving]
  - Herpes zoster [Recovered/Resolved]

NARRATIVE: CASE EVENT DATE: 201301
